FAERS Safety Report 13917005 (Version 3)
Quarter: 2017Q4

REPORT INFORMATION
  Report Type: Spontaneous
  Country: JP (occurrence: JP)
  Receive Date: 20170829
  Receipt Date: 20171113
  Transmission Date: 20180320
  Serious: Yes (Other)
  Sender: FDA-Public Use
  Company Number: JP-ELI_LILLY_AND_COMPANY-JP201606007878

PATIENT
  Age: 64 Year
  Sex: Male

DRUGS (2)
  1. TS-1 [Suspect]
     Active Substance: GIMERACIL\OTERACIL\TEGAFUR
     Indication: SQUAMOUS CELL CARCINOMA OF HEAD AND NECK
     Dosage: 100 MG, 2/W
     Route: 048
     Dates: start: 20141128, end: 20150324
  2. ERBITUX [Suspect]
     Active Substance: CETUXIMAB
     Indication: SQUAMOUS CELL CARCINOMA OF HEAD AND NECK
     Dosage: 250 MG/M2, WEEKLY (1/W)
     Route: 042
     Dates: start: 20141128, end: 20150324

REACTIONS (13)
  - Hypermagnesaemia [Recovered/Resolved]
  - Herpes zoster [Recovered/Resolved]
  - Off label use [Unknown]
  - White blood cell count decreased [Recovered/Resolved]
  - Constipation [Recovered/Resolved]
  - Dermatitis acneiform [Not Recovered/Not Resolved]
  - Hyperkalaemia [Recovered/Resolved]
  - Peripheral motor neuropathy [Not Recovered/Not Resolved]
  - Hypomagnesaemia [Recovered/Resolved]
  - Dry skin [Not Recovered/Not Resolved]
  - Bone marrow failure [Recovered/Resolved]
  - Anaemia [Not Recovered/Not Resolved]
  - Neutrophil count decreased [Recovered/Resolved]

NARRATIVE: CASE EVENT DATE: 20141128
